FAERS Safety Report 6291183-X (Version None)
Quarter: 2009Q3

REPORT INFORMATION
  Report Type: 
  Country: None (occurrence: None)
  Receive Date: 20090730
  Receipt Date: 20090722
  Transmission Date: 20100115
  Serious: Yes (Hospitalization, Other)
  Sender: FDA-Public Use
  Company Number: B0586349A

PATIENT
  Sex: Female

DRUGS (2)
  1. ZOVIRAX [Suspect]
     Indication: HERPES ZOSTER
     Dosage: 3200MG PER DAY
     Route: 048
     Dates: start: 20090615, end: 20090616
  2. ROCEPHIN [Concomitant]
     Route: 065

REACTIONS (2)
  - METABOLIC ENCEPHALOPATHY [None]
  - MYOCLONUS [None]
